FAERS Safety Report 7610469-7 (Version None)
Quarter: 2011Q3

REPORT INFORMATION
  Report Type: 
  Country: None (occurrence: None)
  Receive Date: 20110707
  Receipt Date: 20110623
  Transmission Date: 20111222
  Serious: Yes (Hospitalization, Other)
  Sender: FDA-Public Use
  Company Number: HA11-150-AE

PATIENT
  Age: 61 Year
  Sex: Male
  Weight: 84.369 kg

DRUGS (8)
  1. ENALAPRIL MALEATE [Concomitant]
  2. CARDIAZEM [Concomitant]
  3. PHENYTOIN SODIUM [Suspect]
     Indication: CONVULSION
     Dosage: 1 CAPSULE, TID, ORAL
     Route: 048
  4. LANTUS [Concomitant]
  5. CLONIDINE [Concomitant]
  6. NEORAL [Concomitant]
  7. IMURAN [Concomitant]
  8. LIPITOR [Concomitant]

REACTIONS (2)
  - PRODUCT SUBSTITUTION ISSUE [None]
  - COMPLICATIONS OF TRANSPLANTED KIDNEY [None]
